FAERS Safety Report 12391719 (Version 1)
Quarter: 2016Q2

REPORT INFORMATION
  Report Type: Spontaneous
  Country: US (occurrence: US)
  Receive Date: 20160522
  Receipt Date: 20160522
  Transmission Date: 20160815
  Serious: Yes (Hospitalization)
  Sender: FDA-Public Use
  Company Number: US-BAYER-2016-093665

PATIENT
  Age: 29 Year
  Sex: Female

DRUGS (2)
  1. PRENATAL VITAMINS [Concomitant]
     Active Substance: VITAMINS
  2. MIRENA [Suspect]
     Active Substance: LEVONORGESTREL
     Indication: CONTRACEPTION
     Dosage: 20 MCG/24HR, CONT
     Route: 015
     Dates: start: 20140613, end: 20140702

REACTIONS (8)
  - Vulvovaginal pruritus [None]
  - Device dislocation [None]
  - Complication associated with device [None]
  - Procedural pain [None]
  - Post procedural discomfort [None]
  - Abdominal pain lower [None]
  - Pelvic pain [None]
  - Uterine perforation [None]

NARRATIVE: CASE EVENT DATE: 20140613
